FAERS Safety Report 23033484 (Version 1)
Quarter: 2023Q4

REPORT INFORMATION
  Report Type: Spontaneous
  Country: US (occurrence: None)
  Receive Date: 20231004
  Receipt Date: 20231004
  Transmission Date: 20240110
  Serious: No
  Sender: FDA-Public Use
  Company Number: None

PATIENT
  Age: 64 Year
  Sex: Female
  Weight: 80.29 kg

DRUGS (7)
  1. MOLNUPIRAVIR [Suspect]
     Active Substance: MOLNUPIRAVIR
     Indication: COVID-19
     Dosage: 4 CAPSULES EVERY 12 HOURS BNY MOUTH
     Dates: start: 20230908, end: 20230913
  2. ATENOLOL [Concomitant]
  3. Losarten [Concomitant]
  4. EZETIMIBE [Concomitant]
  5. RANOLAZINE [Concomitant]
     Active Substance: RANOLAZINE
  6. ONE DAY WOMANS VITAMIN [Concomitant]
  7. TYLENOL [Concomitant]
     Active Substance: ACETAMINOPHEN

REACTIONS (4)
  - Urticaria [None]
  - Urticaria [None]
  - Ear pain [None]
  - Ear swelling [None]

NARRATIVE: CASE EVENT DATE: 20230915
